FAERS Safety Report 24718419 (Version 1)
Quarter: 2024Q4

REPORT INFORMATION
  Report Type: Spontaneous
  Country: US (occurrence: US)
  Receive Date: 20241210
  Receipt Date: 20241210
  Transmission Date: 20250115
  Serious: No
  Sender: ABBVIE
  Company Number: US-ABBVIE-6037347

PATIENT

DRUGS (1)
  1. BOTOX COSMETIC [Suspect]
     Active Substance: ONABOTULINUMTOXINA
     Indication: Excessive gingival display
     Dosage: TIME INTERVAL: AS NECESSARY
     Route: 030

REACTIONS (3)
  - Eye swelling [Unknown]
  - Swelling face [Unknown]
  - Erythema [Unknown]
